FAERS Safety Report 7513322-2 (Version None)
Quarter: 2011Q2

REPORT INFORMATION
  Report Type: 
  Country: None (occurrence: None)
  Receive Date: 20110525
  Receipt Date: 20110525
  Transmission Date: 20111010
  Serious: No
  Sender: FDA-Public Use
  Company Number: None

PATIENT
  Sex: Male
  Weight: 106.5953 kg

DRUGS (1)
  1. SEPTOCAINE [Suspect]
     Indication: DENTAL COSMETIC PROCEDURE
     Dosage: EARLY APRIL 2011,  APRIL 20TH 2011

REACTIONS (3)
  - SKIN EXFOLIATION [None]
  - ERYTHEMA [None]
  - BURNING SENSATION [None]
